FAERS Safety Report 18191602 (Version 1)
Quarter: 2020Q3

REPORT INFORMATION
  Report Type: Spontaneous
  Country: US (occurrence: US)
  Receive Date: 20200825
  Receipt Date: 20200825
  Transmission Date: 20201103
  Serious: No
  Sender: FDA-Public Use
  Company Number: US-CIPLA LTD.-2020US03780

PATIENT

DRUGS (2)
  1. DICLOFENAC [Suspect]
     Active Substance: DICLOFENAC
     Indication: TENDONITIS
     Dosage: 4 GRAM, THREE TIMES DAILY AS NEEDED
     Route: 061
     Dates: start: 20200520
  2. DICLOFENAC [Suspect]
     Active Substance: DICLOFENAC
     Indication: CARPAL TUNNEL SYNDROME
     Dosage: 2 GRAM, TID
     Route: 061
     Dates: start: 20200525

REACTIONS (4)
  - Intentional product use issue [Unknown]
  - Fatigue [Recovered/Resolved]
  - Off label use [Unknown]
  - Product use in unapproved indication [Unknown]

NARRATIVE: CASE EVENT DATE: 20200520
